FAERS Safety Report 11333539 (Version 1)
Quarter: 2015Q3

REPORT INFORMATION
  Report Type: Spontaneous
  Country: US (occurrence: US)
  Receive Date: 20150803
  Receipt Date: 20150803
  Transmission Date: 20151125
  Serious: No
  Sender: FDA-Public Use
  Company Number: US-ELI_LILLY_AND_COMPANY-US200801004358

PATIENT
  Age: 47 Year
  Sex: Female
  Weight: 122.45 kg

DRUGS (10)
  1. GEODON [Concomitant]
     Active Substance: ZIPRASIDONE HYDROCHLORIDE\ZIPRASIDONE MESYLATE
     Dates: start: 20010618
  2. PROZAC [Concomitant]
     Active Substance: FLUOXETINE HYDROCHLORIDE
     Dates: start: 2002
  3. ZOLOFT [Concomitant]
     Active Substance: SERTRALINE HYDROCHLORIDE
     Dates: start: 2007
  4. RISPERDAL [Concomitant]
     Active Substance: RISPERIDONE
     Dates: start: 1990, end: 2007
  5. DEPAKOTE [Concomitant]
     Active Substance: DIVALPROEX SODIUM
     Dates: start: 1990, end: 2003
  6. TRAZODONE [Concomitant]
     Active Substance: TRAZODONE HYDROCHLORIDE
     Dates: start: 2002
  7. SEROQUEL [Concomitant]
     Active Substance: QUETIAPINE FUMARATE
     Dates: start: 20030519
  8. DEPAKENE [Concomitant]
     Active Substance: VALPROIC ACID
     Dates: start: 2002
  9. ZYPREXA [Suspect]
     Active Substance: OLANZAPINE
     Dosage: 5 MG, UNK
     Dates: start: 19991019, end: 20020924
  10. WELLBUTRIN [Concomitant]
     Active Substance: BUPROPION HYDROCHLORIDE
     Dates: start: 1990, end: 2007

REACTIONS (6)
  - Blood cholesterol abnormal [Unknown]
  - Diabetes mellitus [Not Recovered/Not Resolved]
  - Polydipsia [Unknown]
  - Hyperphagia [Unknown]
  - Polyuria [Unknown]
  - Frustration [Unknown]

NARRATIVE: CASE EVENT DATE: 20000619
